FAERS Safety Report 15300981 (Version 1)
Quarter: 2018Q3

REPORT INFORMATION
  Report Type: Spontaneous
  Country: JP (occurrence: JP)
  Receive Date: 20180821
  Receipt Date: 20180821
  Transmission Date: 20181010
  Serious: Yes (Hospitalization, Other)
  Sender: FDA-Public Use
  Company Number: JP-JNJFOC-20180803446

PATIENT
  Sex: Male
  Weight: 60.2 kg

DRUGS (8)
  1. CILOSTAZOL. [Interacting]
     Active Substance: CILOSTAZOL
     Indication: PRODUCT USED FOR UNKNOWN INDICATION
     Route: 065
     Dates: end: 20180726
  2. XARELTO [Suspect]
     Active Substance: RIVAROXABAN
     Indication: ATRIAL FIBRILLATION
     Route: 048
     Dates: start: 201804, end: 20180726
  3. LIMAPROST [Concomitant]
     Active Substance: LIMAPROST
     Indication: SPINAL COLUMN STENOSIS
     Route: 065
     Dates: end: 20180726
  4. CEFTRIAXON [Concomitant]
     Active Substance: CEFTRIAXONE
     Indication: MENINGITIS
     Route: 065
  5. XARELTO [Suspect]
     Active Substance: RIVAROXABAN
     Indication: CEREBROVASCULAR ACCIDENT PROPHYLAXIS
     Route: 048
     Dates: start: 201804, end: 20180726
  6. AMLODIPINE W/VALSARTAN [Concomitant]
     Active Substance: AMLODIPINE\VALSARTAN
     Indication: HYPERTENSION
     Route: 065
     Dates: end: 20180726
  7. BENZBROMARONE [Concomitant]
     Active Substance: BENZBROMARONE
     Indication: HYPERURICAEMIA
     Route: 065
     Dates: end: 20180726
  8. LANSOPRAZOLE. [Concomitant]
     Active Substance: LANSOPRAZOLE
     Route: 065
     Dates: end: 20180726

REACTIONS (3)
  - Cerebral haemorrhage [Recovered/Resolved]
  - Meningitis [Recovered/Resolved]
  - Labelled drug-drug interaction medication error [Unknown]
